FAERS Safety Report 18123682 (Version 2)
Quarter: 2022Q1

REPORT INFORMATION
  Report Type: Report from Study
  Country: US (occurrence: US)
  Receive Date: 20200807
  Receipt Date: 20220301
  Transmission Date: 20220423
  Serious: No
  Sender: FDA-Public Use
  Company Number: US-AEGERION PHARMACEUTICAL, INC-AEGR004805

PATIENT
  Age: 9 Year
  Sex: Male
  Weight: 45 kg

DRUGS (9)
  1. METRELEPTIN [Suspect]
     Active Substance: METRELEPTIN
     Indication: Congenital generalised lipodystrophy
     Dosage: 1 MILLIGRAM, QD
     Route: 065
     Dates: start: 20160701, end: 20170305
  2. METRELEPTIN [Suspect]
     Active Substance: METRELEPTIN
     Dosage: 0.7 MILLIGRAM, QD
     Route: 065
     Dates: start: 20170306, end: 20170809
  3. METRELEPTIN [Suspect]
     Active Substance: METRELEPTIN
     Dosage: 0.6 MILLIGRAM, QD
     Route: 065
     Dates: start: 20170810, end: 20201104
  4. METRELEPTIN [Suspect]
     Active Substance: METRELEPTIN
     Dosage: 1 MILLIGRAM, QD
     Route: 058
     Dates: start: 20201105
  5. ALBUTEROL [Concomitant]
     Active Substance: ALBUTEROL
     Indication: Asthma
     Dosage: 2.5 MILLIGRAM, PRN
     Route: 045
     Dates: start: 2012
  6. ALBUTEROL [Concomitant]
     Active Substance: ALBUTEROL
     Dosage: 0.63MG/3ML
  7. BACTERIOSTATIC WATER [Concomitant]
     Active Substance: WATER
     Indication: Product used for unknown indication
  8. FISH OIL [Concomitant]
     Active Substance: FISH OIL
     Indication: Product used for unknown indication
  9. SINGULAIR [Concomitant]
     Active Substance: MONTELUKAST SODIUM
     Indication: Product used for unknown indication

REACTIONS (6)
  - Somnolence [Unknown]
  - Muscle spasms [Unknown]
  - Gun shot wound [Recovered/Resolved]
  - Onychomycosis [Not Recovered/Not Resolved]
  - Behaviour disorder [Not Recovered/Not Resolved]
  - Upper respiratory tract infection [Unknown]

NARRATIVE: CASE EVENT DATE: 20200323
